FAERS Safety Report 5835537-1 (Version None)
Quarter: 2008Q3

REPORT INFORMATION
  Report Type: 
  Country: None (occurrence: None)
  Receive Date: 20080806
  Receipt Date: 20080729
  Transmission Date: 20090109
  Serious: Yes (Hospitalization, Disabling)
  Sender: FDA-Public Use
  Company Number: B0472112A

PATIENT
  Age: 74 Year
  Sex: Male

DRUGS (4)
  1. SERETIDE [Suspect]
     Indication: RHINITIS
     Dosage: 250MCG TWICE PER DAY
     Route: 055
  2. LAUROMACROGOL 400 [Suspect]
     Route: 042
  3. SINGULAIR [Suspect]
     Indication: RHINITIS
     Dosage: 1UNIT PER DAY
     Route: 048
     Dates: start: 20051116, end: 20060415
  4. XYZAL [Suspect]
     Indication: RHINITIS
     Route: 048

REACTIONS (12)
  - ALLERGIC GRANULOMATOUS ANGIITIS [None]
  - CUTANEOUS VASCULITIS [None]
  - DYSAESTHESIA [None]
  - GAIT DISTURBANCE [None]
  - INFLAMMATION [None]
  - LEUKOCYTOSIS [None]
  - PAIN [None]
  - PARAESTHESIA [None]
  - PERIPHERAL SENSORY NEUROPATHY [None]
  - PURPURA [None]
  - PYREXIA [None]
  - TRANSAMINASES INCREASED [None]
